FAERS Safety Report 12324660 (Version 4)
Quarter: 2016Q4

REPORT INFORMATION
  Report Type: Spontaneous
  Country: JP (occurrence: JP)
  Receive Date: 20160502
  Receipt Date: 20161110
  Transmission Date: 20170207
  Serious: Yes (Hospitalization)
  Sender: FDA-Public Use
  Company Number: JP-BIOCRYST PHARMACEUTICALS, INC.-2016BCR00181

PATIENT
  Age: 66 Year
  Sex: Female

DRUGS (16)
  1. ORURU [Concomitant]
     Indication: ANXIETY DISORDER
     Dosage: 50 MG, 1X/DAY
     Route: 048
  2. CONTOL [Concomitant]
     Active Substance: CHLORDIAZEPOXIDE
     Indication: ANXIETY DISORDER
     Dosage: 10 MG, 1X/DAY
     Route: 048
  3. MEROPEN [Suspect]
     Active Substance: MEROPENEM
     Indication: PYREXIA
     Dosage: UNK UNK, 1X/DAY
     Route: 042
     Dates: start: 20160327
  4. CONSTAN [Concomitant]
     Active Substance: ALPRAZOLAM
     Indication: ANXIETY DISORDER
     Dosage: 4 MG, 1X/DAY
     Route: 048
  5. SOLDEM 3AG [Concomitant]
     Dosage: 1500 ML, 1X/DAY
     Route: 042
     Dates: start: 20160411, end: 20160416
  6. CARBOCISTEINE [Concomitant]
     Active Substance: CARBOCYSTEINE
     Indication: CHRONIC SINUSITIS
     Dosage: 1500 MG, 1X/DAY
     Route: 048
  7. MEROPEN [Suspect]
     Active Substance: MEROPENEM
     Dosage: 1 G, 1X/DAY
     Route: 042
     Dates: start: 20160418, end: 20160418
  8. EPINASTINE [Concomitant]
     Active Substance: EPINASTINE
     Indication: CHRONIC SINUSITIS
     Dosage: 20 MG, 1X/DAY
     Route: 048
  9. CLARITHROMYCIN. [Concomitant]
     Active Substance: CLARITHROMYCIN
     Indication: CHRONIC SINUSITIS
     Dosage: 200 MG, 1X/DAY
     Route: 048
  10. ORACEF [Concomitant]
     Indication: OPEN FRACTURE
     Dosage: 750 MG, 1X/DAY
     Route: 048
     Dates: start: 20160408
  11. KIPRES [Concomitant]
     Active Substance: MONTELUKAST SODIUM
     Indication: CHRONIC SINUSITIS
     Dosage: 10 MG, 1X/DAY
     Route: 048
  12. RAPIACTA [Suspect]
     Active Substance: PERAMIVIR
     Indication: INFLUENZA
     Dosage: 300 MG, UNK
     Route: 042
     Dates: start: 20160411, end: 20160411
  13. LIPOVAS [Concomitant]
     Active Substance: PRAVASTATIN SODIUM
     Indication: HYPERLIPIDAEMIA
     Dosage: 5 MG, 1X/DAY
     Route: 048
  14. MECOBALAMIN [Concomitant]
     Active Substance: METHYLCOBALAMIN
     Dosage: 500 MG, 1X/DAY
     Route: 048
  15. SENNOSIDE [Concomitant]
     Active Substance: SENNOSIDES
     Indication: CONSTIPATION
     Dosage: 12 MG, 1X/DAY
     Route: 048
  16. TICLOPIDINE HYDROCHLORIDE. [Concomitant]
     Active Substance: TICLOPIDINE HYDROCHLORIDE
     Indication: ARTERIAL RUPTURE
     Dosage: 200 MG, 1X/DAY
     Route: 048
     Dates: start: 20160409

REACTIONS (6)
  - Beta 2 microglobulin urine increased [Recovered/Resolved]
  - Proteinuria [Recovered/Resolved]
  - Cardiac failure [Unknown]
  - Hypoalbuminaemia [Recovered/Resolved]
  - Eosinophil count increased [Recovered/Resolved]
  - Acute kidney injury [Recovered/Resolved with Sequelae]

NARRATIVE: CASE EVENT DATE: 201604
